FAERS Safety Report 13832506 (Version 1)
Quarter: 2017Q3

REPORT INFORMATION
  Report Type: Spontaneous
  Country: US (occurrence: US)
  Receive Date: 20170803
  Receipt Date: 20170803
  Transmission Date: 20171127
  Serious: No
  Sender: FDA-Public Use
  Company Number: US-ROCHE-1358513

PATIENT
  Sex: Female

DRUGS (2)
  1. BONIVA [Suspect]
     Active Substance: IBANDRONATE SODIUM
     Indication: OSTEOPOROSIS
     Dosage: LAST DOSE 2-21/2 WEEKS AGO
     Route: 065
  2. BONIVA [Suspect]
     Active Substance: IBANDRONATE SODIUM
     Indication: PAIN IN EXTREMITY

REACTIONS (5)
  - Peripheral swelling [Unknown]
  - Nail growth abnormal [Unknown]
  - Pain in extremity [Unknown]
  - Hair growth abnormal [Unknown]
  - Musculoskeletal chest pain [Unknown]
